FAERS Safety Report 11236391 (Version 2)
Quarter: 2015Q3

REPORT INFORMATION
  Report Type: Spontaneous
  Country: None (occurrence: FR)
  Receive Date: 20150702
  Receipt Date: 20150706
  Transmission Date: 20151125
  Serious: Yes (Other)
  Sender: FDA-Public Use
  Company Number: FR-ALLERGAN-1511109US

PATIENT
  Age: 74 Year
  Sex: Male
  Weight: 80 kg

DRUGS (3)
  1. OZURDEX [Suspect]
     Active Substance: DEXAMETHASONE
     Indication: RETINAL VEIN OCCLUSION
     Dosage: 0.7 MG, SINGLE
     Route: 031
     Dates: start: 20150611, end: 20150611
  2. ALLOPURINOL. [Concomitant]
     Active Substance: ALLOPURINOL
     Indication: GOUT
  3. AERIUS [Concomitant]
     Active Substance: DESLORATADINE
     Indication: SEASONAL ALLERGY

REACTIONS (2)
  - Complication of device insertion [Recovering/Resolving]
  - Device malfunction [Recovering/Resolving]

NARRATIVE: CASE EVENT DATE: 20150611
